FAERS Safety Report 24286890 (Version 1)
Quarter: 2024Q3

REPORT INFORMATION
  Report Type: Spontaneous
  Country: US (occurrence: US)
  Receive Date: 20240905
  Receipt Date: 20240905
  Transmission Date: 20241017
  Serious: Yes (Hospitalization)
  Sender: SK LIFE SCIENCE
  Company Number: US-SK LIFE SCIENCE, INC.-SKPVG-2024-001998

PATIENT

DRUGS (1)
  1. XCOPRI [Suspect]
     Active Substance: CENOBAMATE
     Indication: Epilepsy
     Dosage: HALF A 50 MG TABLET, ONCE DAILY
     Route: 048
     Dates: start: 202408

REACTIONS (7)
  - Generalised tonic-clonic seizure [Recovering/Resolving]
  - Seizure cluster [Recovering/Resolving]
  - Seizure [Recovering/Resolving]
  - Dyspnoea [Recovering/Resolving]
  - Product dispensing error [Not Recovered/Not Resolved]
  - Wrong technique in product usage process [Not Recovered/Not Resolved]
  - Off label use [Not Recovered/Not Resolved]

NARRATIVE: CASE EVENT DATE: 20240801
